FAERS Safety Report 5213604-3 (Version None)
Quarter: 2007Q1

REPORT INFORMATION
  Report Type: 
  Country: None (occurrence: None)
  Receive Date: 20070119
  Receipt Date: 20070110
  Transmission Date: 20070707
  Serious: Yes (Hospitalization)
  Sender: FDA-Public Use
  Company Number: GB-ABBOTT-07P-167-0355675-00

PATIENT
  Sex: Female

DRUGS (2)
  1. HUMIRA [Suspect]
     Indication: ANKYLOSING SPONDYLITIS
     Route: 058
     Dates: start: 20061001
  2. HUMIRA [Suspect]
     Route: 058

REACTIONS (3)
  - MALAISE [None]
  - PHARYNGOLARYNGEAL PAIN [None]
  - SUBCORNEAL PUSTULAR DERMATOSIS [None]
